FAERS Safety Report 18101704 (Version 1)
Quarter: 2020Q3

REPORT INFORMATION
  Report Type: Spontaneous
  Country: CN (occurrence: CN)
  Receive Date: 20200802
  Receipt Date: 20200802
  Transmission Date: 20201103
  Serious: Yes (Hospitalization, Other)
  Sender: FDA-Public Use
  Company Number: CN-SA-2020SA189859

PATIENT

DRUGS (3)
  1. OXALIPLATIN. [Suspect]
     Active Substance: OXALIPLATIN
     Indication: GASTRIC CANCER
     Dosage: 223.8 MG
  2. CAPECITABINE. [Suspect]
     Active Substance: CAPECITABINE
     Dosage: IN THE EVENING
  3. CAPECITABINE. [Suspect]
     Active Substance: CAPECITABINE
     Indication: GASTRIC CANCER
     Dosage: IN THE MORNING

REACTIONS (17)
  - Prealbumin decreased [Unknown]
  - Bilirubin conjugated increased [Unknown]
  - Pyrexia [Recovered/Resolved]
  - Blood alkaline phosphatase increased [Unknown]
  - Gamma-glutamyltransferase increased [Unknown]
  - Blood bilirubin increased [Unknown]
  - Abdominal tenderness [Unknown]
  - Liver disorder [Unknown]
  - Gastrointestinal disorder [Unknown]
  - Discomfort [Unknown]
  - White blood cell count increased [Unknown]
  - Neutrophil count increased [Unknown]
  - Protein total decreased [Unknown]
  - C-reactive protein increased [Unknown]
  - Neutrophil percentage increased [Unknown]
  - Bacteraemia [Unknown]
  - Myelosuppression [Unknown]
